FAERS Safety Report 22522785 (Version 1)
Quarter: 2023Q2

REPORT INFORMATION
  Report Type: Report from Study
  Country: US (occurrence: US)
  Receive Date: 20230605
  Receipt Date: 20230605
  Transmission Date: 20230722
  Serious: Yes (Other)
  Sender: FDA-Public Use
  Company Number: US-002147023-NVSC2023US124946

PATIENT
  Sex: Female

DRUGS (1)
  1. LEQVIO [Suspect]
     Active Substance: INCLISIRAN SODIUM
     Indication: Product used for unknown indication
     Dosage: UNK
     Route: 058
     Dates: start: 20230426

REACTIONS (6)
  - Arterial occlusive disease [Unknown]
  - Myalgia [Recovered/Resolved]
  - Blood cholesterol decreased [Unknown]
  - Low density lipoprotein decreased [Unknown]
  - Blood triglycerides decreased [Unknown]
  - Headache [Recovered/Resolved]
